FAERS Safety Report 9046223 (Version 1)
Quarter: 2013Q1

REPORT INFORMATION
  Report Type: Spontaneous
  Country: MX (occurrence: MX)
  Receive Date: 20130201
  Receipt Date: 20130201
  Transmission Date: 20140127
  Serious: Yes (Other)
  Sender: FDA-Public Use
  Company Number: PHHY2013MX008934

PATIENT
  Age: 76 Year
  Sex: Female

DRUGS (8)
  1. EXFORGE [Suspect]
     Indication: HYPERTENSION
     Dosage: 1 DF (160/5MG) DAILY
     Route: 048
     Dates: start: 20100509
  2. LEVOTHYROXINE [Concomitant]
     Indication: HORMONE LEVEL ABNORMAL
     Dosage: 1.5 UKN, UNK
     Dates: start: 201212
  3. WOBENZYM [Concomitant]
     Indication: GASTRIC DISORDER
     Dosage: 2 UKN, Q8H
     Dates: start: 201212
  4. CALCIUM [Concomitant]
     Dosage: 1 UKN, Q8H
     Dates: start: 201210
  5. RIOPAN [Concomitant]
     Indication: GASTRIC DISORDER
     Dosage: 1 UKN, BEFORE EVERY MEAL
     Dates: start: 201210
  6. IMMUNOCAL [Concomitant]
     Indication: IMMUNE SYSTEM DISORDER
     Dosage: 2 UKN, QD
     Dates: start: 201001
  7. CONCOR [Concomitant]
     Indication: BLOOD PRESSURE
     Dosage: 1 UKN, DAILY
  8. OMEGA 3 [Concomitant]
     Indication: CARDIOVASCULAR DISORDER
     Dosage: 5 ML, DAILY

REACTIONS (3)
  - Thyroid cancer [Unknown]
  - Oropharyngeal discomfort [Not Recovered/Not Resolved]
  - Local swelling [Not Recovered/Not Resolved]
